FAERS Safety Report 17470465 (Version 1)
Quarter: 2020Q1

REPORT INFORMATION
  Report Type: Spontaneous
  Country: US (occurrence: US)
  Receive Date: 20200227
  Receipt Date: 20200227
  Transmission Date: 20200409
  Serious: Yes (Hospitalization)
  Sender: FDA-Public Use
  Company Number: US-SUNNY_PHARMTECH-USA-POI0573202000195

PATIENT
  Age: 51 Year
  Sex: Female
  Weight: 56.75 kg

DRUGS (3)
  1. ATIVAN [Concomitant]
     Active Substance: LORAZEPAM
     Indication: ANXIETY
     Dates: start: 20200116, end: 202002
  2. DULOXETINE. [Concomitant]
     Active Substance: DULOXETINE
     Indication: DEPRESSION
     Dates: start: 20200201, end: 202002
  3. NITROFURANTOIN CAPSULES [Suspect]
     Active Substance: NITROFURANTOIN
     Indication: URINARY TRACT INFECTION
     Route: 048
     Dates: start: 202001, end: 20200203

REACTIONS (4)
  - Liver function test increased [Unknown]
  - Impaired gastric emptying [Unknown]
  - Hepatitis [Unknown]
  - Jaundice [Unknown]

NARRATIVE: CASE EVENT DATE: 20200203
